FAERS Safety Report 8014135-8 (Version None)
Quarter: 2011Q4

REPORT INFORMATION
  Report Type: 
  Country: None (occurrence: None)
  Receive Date: 20111227
  Receipt Date: 20111227
  Transmission Date: 20120403
  Serious: Yes (Other)
  Sender: FDA-Public Use
  Company Number: None

PATIENT
  Age: 67 Year
  Sex: Male

DRUGS (4)
  1. REVLIMID [Suspect]
     Indication: CHRONIC LYMPHOCYTIC LEUKAEMIA
     Dosage: REVLIMID 10 MG DAILY ORALLY
     Route: 048
     Dates: start: 20100301
  2. LISINOPRIL [Concomitant]
  3. TRAZODONE HCL [Concomitant]
  4. SIMVASTATIN [Concomitant]

REACTIONS (1)
  - NEUROPATHY PERIPHERAL [None]
